FAERS Safety Report 7486844-0 (Version None)
Quarter: 2011Q2

REPORT INFORMATION
  Report Type: 
  Country: None (occurrence: None)
  Receive Date: 20110517
  Receipt Date: 20110505
  Transmission Date: 20111010
  Serious: Yes (Congenital Anomaly)
  Sender: FDA-Public Use
  Company Number: NL-GENENTECH-279081

PATIENT
  Sex: Female

DRUGS (2)
  1. RITUXAN [Suspect]
     Indication: RHEUMATOID ARTHRITIS
     Dosage: 1000 MG, UNK
     Route: 064
     Dates: start: 20070508
  2. RITUXAN [Suspect]
     Dosage: 1000 MG, UNK
     Route: 064
     Dates: start: 20070523

REACTIONS (3)
  - TALIPES [None]
  - ASTHMA [None]
  - LIVE BIRTH [None]
